FAERS Safety Report 8872473 (Version 1)
Quarter: 2012Q4

REPORT INFORMATION
  Report Type: Spontaneous
  Country: US (occurrence: None)
  Receive Date: 20121031
  Receipt Date: 20121031
  Transmission Date: 20130627
  Serious: No
  Sender: FDA-Public Use
  Company Number: None

PATIENT
  Age: 45 Year
  Sex: Male
  Weight: 120.2 kg

DRUGS (1)
  1. BETAMETHASONE [Suspect]
     Route: 014

REACTIONS (3)
  - Pyrexia [None]
  - Insomnia [None]
  - Nasopharyngitis [None]
